FAERS Safety Report 10161617 (Version 1)
Quarter: 2014Q2

REPORT INFORMATION
  Report Type: Spontaneous
  Country: US (occurrence: US)
  Receive Date: 20140509
  Receipt Date: 20140509
  Transmission Date: 20141212
  Serious: Yes (Hospitalization)
  Sender: FDA-Public Use
  Company Number: US-SUN PHARMACEUTICAL INDUSTRIES LTD-2014SUN00987

PATIENT
  Age: 35 Year
  Sex: Male

DRUGS (4)
  1. AMLODIPINE BESYLATE 5 MG TABLET [Suspect]
     Indication: PRODUCT USED FOR UNKNOWN INDICATION
     Dosage: 30 TABLETS (150MG)
     Route: 048
  2. METOPROLOL TARTRATE 25MG TABLET [Suspect]
     Indication: PRODUCT USED FOR UNKNOWN INDICATION
     Dosage: 47 TABLETS (1.18G)
     Route: 048
  3. VERAPAMIL HYDROCHLORIDE EXTENDED RELEASE TABLETS 180MG [Suspect]
     Indication: PRODUCT USED FOR UNKNOWN INDICATION
     Dosage: 57 TABLETS (10.26G)
     Route: 048
  4. INSULIN [Concomitant]
     Indication: TYPE 1 DIABETES MELLITUS

REACTIONS (11)
  - Cardiogenic shock [Recovered/Resolved]
  - Renal failure acute [Recovered/Resolved]
  - Hypoglycaemia [Recovered/Resolved]
  - Intentional overdose [Unknown]
  - Toxicity to various agents [Recovered/Resolved]
  - Intentional overdose [None]
  - Bradycardia [None]
  - Cardiac arrest [None]
  - Hyperkalaemia [None]
  - Lactic acidosis [None]
  - Suicide attempt [None]
